FAERS Safety Report 15281117 (Version 1)
Quarter: 2018Q3

REPORT INFORMATION
  Report Type: Report from Study
  Country: US (occurrence: US)
  Receive Date: 20180815
  Receipt Date: 20180815
  Transmission Date: 20181010
  Serious: Yes (Hospitalization, Disabling, Other)
  Sender: FDA-Public Use
  Company Number: US-REGENERON PHARMACEUTICALS, INC.-2018-29914

PATIENT

DRUGS (6)
  1. EYLEA [Suspect]
     Active Substance: AFLIBERCEPT
     Indication: NEOVASCULAR AGE-RELATED MACULAR DEGENERATION
     Dosage: UNK, LEFT EYE
     Route: 031
     Dates: start: 20180309, end: 20180309
  2. EYLEA [Suspect]
     Active Substance: AFLIBERCEPT
     Dosage: 2 MG, RIGHT EYE, LAST DOSE
     Route: 031
     Dates: start: 20180712, end: 20180712
  3. EYLEA [Suspect]
     Active Substance: AFLIBERCEPT
     Indication: CHOROIDAL NEOVASCULARISATION
     Dosage: UNK, LEFT EYE
     Route: 031
     Dates: start: 20180411, end: 20180411
  4. EYLEA [Suspect]
     Active Substance: AFLIBERCEPT
     Dosage: UNK, LEFT EYE
     Route: 031
     Dates: start: 20180530, end: 20180530
  5. EYLEA [Suspect]
     Active Substance: AFLIBERCEPT
     Indication: CHOROIDAL NEOVASCULARISATION
     Dosage: UNK, LEFT EYE
     Route: 031
     Dates: start: 20170915, end: 20170915
  6. EYLEA [Suspect]
     Active Substance: AFLIBERCEPT
     Indication: NEOVASCULAR AGE-RELATED MACULAR DEGENERATION
     Dosage: 2 MG, RIGHT EYE, AS NECESSARY
     Route: 031
     Dates: start: 20170903, end: 20180712

REACTIONS (2)
  - Hospitalisation [Unknown]
  - Blindness [Unknown]

NARRATIVE: CASE EVENT DATE: 20180530
